FAERS Safety Report 23772964 (Version 2)
Quarter: 2024Q3

REPORT INFORMATION
  Report Type: Spontaneous
  Country: US (occurrence: US)
  Receive Date: 20240423
  Receipt Date: 20240722
  Transmission Date: 20241017
  Serious: No
  Sender: SANOFI AVENTIS
  Company Number: US-SA-SAC20240416000142

PATIENT
  Age: 14 Year
  Sex: Male

DRUGS (3)
  1. DUPIXENT [Suspect]
     Active Substance: DUPILUMAB
     Indication: Eosinophilic oesophagitis
     Dosage: 300 MG, QOW
     Route: 058
     Dates: start: 20240202
  2. LEXAPRO [Concomitant]
     Active Substance: ESCITALOPRAM OXALATE
  3. QELBREE [Concomitant]
     Active Substance: VILOXAZINE HYDROCHLORIDE

REACTIONS (4)
  - Injection site urticaria [Not Recovered/Not Resolved]
  - Impaired quality of life [Recovered/Resolved]
  - Infection [Unknown]
  - Drug ineffective [Unknown]
